FAERS Safety Report 21726493 (Version 2)
Quarter: 2023Q1

REPORT INFORMATION
  Report Type: Spontaneous
  Country: US (occurrence: US)
  Receive Date: 20221214
  Receipt Date: 20230102
  Transmission Date: 20230417
  Serious: Yes (Hospitalization, Other)
  Sender: FDA-Public Use
  Company Number: US-Hikma Pharmaceuticals USA Inc.-US-H14001-22-03146

PATIENT
  Age: 20 Year
  Sex: Female

DRUGS (4)
  1. LITHIUM [Suspect]
     Active Substance: LITHIUM
     Indication: Product used for unknown indication
     Dosage: UNKNOWN
     Route: 065
     Dates: start: 202011
  2. LITHIUM [Suspect]
     Active Substance: LITHIUM
     Route: 065
     Dates: start: 202101, end: 20210219
  3. NALTREXONE [Suspect]
     Active Substance: NALTREXONE
     Indication: Alcoholism
     Route: 048
     Dates: start: 20210212, end: 20210216
  4. NALTREXONE [Suspect]
     Active Substance: NALTREXONE
     Dosage: UNKNOWN
     Route: 065
     Dates: start: 20210512, end: 20210517

REACTIONS (8)
  - Eosinophilic pustular folliculitis [Unknown]
  - Acne [Unknown]
  - Pruritus [Unknown]
  - Pustular psoriasis [Recovered/Resolved]
  - Rash [Recovering/Resolving]
  - Drug level above therapeutic [Unknown]
  - Toxicity to various agents [Unknown]
  - Disease recurrence [Recovered/Resolved]

NARRATIVE: CASE EVENT DATE: 20210219
